FAERS Safety Report 10311647 (Version 2)
Quarter: 2014Q3

REPORT INFORMATION
  Report Type: Other
  Country: US (occurrence: US)
  Receive Date: 20140717
  Receipt Date: 20140717
  Transmission Date: 20150326
  Serious: Yes (Death, Hospitalization, Other)
  Sender: FDA-Public Use
  Company Number: US-GSKPPD-2014GSK003656

PATIENT
  Age: 38 Year
  Sex: Male

DRUGS (14)
  1. ZOLOFT [Concomitant]
     Active Substance: SERTRALINE HYDROCHLORIDE
  2. MINITRAN [Concomitant]
     Active Substance: NITROGLYCERIN
  3. NITROGLYCERIN. [Concomitant]
     Active Substance: NITROGLYCERIN
     Route: 060
  4. LIPITOR [Concomitant]
     Active Substance: ATORVASTATIN CALCIUM
  5. TOPROL XL [Concomitant]
     Active Substance: METOPROLOL SUCCINATE
  6. AVANDIA [Suspect]
     Active Substance: ROSIGLITAZONE MALEATE
     Indication: DIABETES MELLITUS
     Dosage: DATES OF AVANDAMET/AVANDARYL (CHOOSE THE COMBO) USE COULD NOT BE CONFIRMED IN RECORDS REVIEWED.
     Route: 048
  7. NON-COATED ASPIRIN [Concomitant]
  8. PLAVIX [Concomitant]
     Active Substance: CLOPIDOGREL BISULFATE
  9. ISOSORBIDE [Concomitant]
     Active Substance: ISOSORBIDE
  10. FUROSEMIDE. [Concomitant]
     Active Substance: FUROSEMIDE
  11. BUSPAR [Concomitant]
     Active Substance: BUSPIRONE HYDROCHLORIDE
  12. PRILOSEC [Concomitant]
     Active Substance: OMEPRAZOLE MAGNESIUM
  13. ZESTRIL [Concomitant]
     Active Substance: LISINOPRIL
  14. HUMULIN R [Concomitant]
     Active Substance: INSULIN HUMAN

REACTIONS (2)
  - Cardiac failure congestive [Recovered/Resolved]
  - Cerebral infarction [Fatal]

NARRATIVE: CASE EVENT DATE: 20010313
